FAERS Safety Report 11030679 (Version 3)
Quarter: 2015Q2

REPORT INFORMATION
  Report Type: Spontaneous
  Country: US (occurrence: US)
  Receive Date: 20150415
  Receipt Date: 20150428
  Transmission Date: 20150821
  Serious: No
  Sender: FDA-Public Use
  Company Number: US-BAYER-2015-117137

PATIENT
  Sex: Male

DRUGS (2)
  1. LORATADINE. [Suspect]
     Active Substance: LORATADINE
     Indication: RHINORRHOEA
  2. LORATADINE. [Suspect]
     Active Substance: LORATADINE
     Indication: SNEEZING
     Route: 048
     Dates: start: 201503

REACTIONS (3)
  - Sneezing [Not Recovered/Not Resolved]
  - Drug effect delayed [Unknown]
  - Rhinorrhoea [Not Recovered/Not Resolved]

NARRATIVE: CASE EVENT DATE: 201503
